FAERS Safety Report 7707286-6 (Version None)
Quarter: 2011Q3

REPORT INFORMATION
  Report Type: 
  Country: None (occurrence: None)
  Receive Date: 20110824
  Receipt Date: 20110818
  Transmission Date: 20111222
  Serious: Yes (Death, Hospitalization, Other)
  Sender: FDA-Public Use
  Company Number: PHHY2011US74902

PATIENT
  Age: 31 Year
  Sex: Male

DRUGS (4)
  1. EXJADE [Suspect]
     Indication: IRON OVERLOAD
     Dosage: UNK UKN, UNK
  2. POSACONAZOLE [Concomitant]
     Dosage: 200 MG, Q6H
     Route: 048
  3. CASPOFUNGIN ACETATE [Concomitant]
     Dosage: 70 MG, QD
     Route: 042
  4. AMPHOTERICIN B [Concomitant]
     Dosage: 5 MG/KG, UNK

REACTIONS (9)
  - OSTEONECROSIS OF JAW [None]
  - PSEUDOMONAS TEST POSITIVE [None]
  - ENTEROCOCCUS TEST POSITIVE [None]
  - PERIORBITAL OEDEMA [None]
  - MOUTH HAEMORRHAGE [None]
  - RENAL IMPAIRMENT [None]
  - HEPATIC FUNCTION ABNORMAL [None]
  - ZYGOMYCOSIS [None]
  - PYREXIA [None]
